FAERS Safety Report 20693128 (Version 1)
Quarter: 2022Q2

REPORT INFORMATION
  Report Type: Spontaneous
  Country: US (occurrence: None)
  Receive Date: 20220410
  Receipt Date: 20220410
  Transmission Date: 20220720
  Serious: No
  Sender: FDA-Public Use
  Company Number: 2022A137520

PATIENT
  Sex: Female

DRUGS (1)
  1. CRESTOR [Suspect]
     Active Substance: ROSUVASTATIN CALCIUM
     Dosage: CRESTOR AT NIGHT AND HAS USED IT FOR ABOUT 5 YEARS
     Route: 048

REACTIONS (2)
  - Gastrooesophageal reflux disease [Unknown]
  - Taste disorder [Unknown]
